FAERS Safety Report 18664295 (Version 2)
Quarter: 2021Q1

REPORT INFORMATION
  Report Type: Spontaneous
  Country: NL (occurrence: NL)
  Receive Date: 20201225
  Receipt Date: 20210112
  Transmission Date: 20210419
  Serious: Yes (Hospitalization, Other)
  Sender: FDA-Public Use
  Company Number: NL-TEVA-2020-NL-1860765

PATIENT
  Sex: Female
  Weight: 58 kg

DRUGS (10)
  1. CEFAZOLINE [CEFAZOLIN] [Suspect]
     Active Substance: CEFAZOLIN
     Indication: ANTIBIOTIC PROPHYLAXIS
     Dosage: 3000 MILLIGRAM DAILY; 3 DD 1000 MG, CEFAZOLINE INJVLST 100MG/ML / BRAND NAME NOT SPECIFIED
     Dates: start: 20201118, end: 20201119
  2. METOPROLOL TABLET MGA 100MG (SUCCINAAT) / METOPROLOLSUCCINAAT MYLAN RE [Concomitant]
     Dosage: THERAPY START DATE :ASKU:THERAPY START DATE :ASKU
  3. FERROFUMARAAT TABLET 200MG / FERROFUMARAAT CF TABLET 200MG [Concomitant]
     Dosage: THERAPY START DATE:ASKED BUT UNKNOWN?THERAPY END DATE :ASKED BUT UNKNOWN
  4. FOLIUMZUUR TABLET 5MG / FOLIUMZUUR AUROBINDO TABLET 5MG [Concomitant]
     Dosage: THERAPY START DATE:ASKED BUT UNKNOWN?THERAPY END DATE :ASKED BUT UNKNOWN
  5. NIFEDIPINE TABLET MGA 30MG / NIFEDIPINE SANDOZ RETARD TABLET MGA 30MG [Concomitant]
     Dosage: THERAPY START DATE:ASKED BUT UNKNOWN?THERAPY END DATE :ASKED BUT UNKNOWN
  6. PICOZWAVELZUUR/MGO/CITROENZUUR PDR (PICOPREP) / PICOPREP POEDER VOOR D [Concomitant]
  7. PROPOFOL INJECTIE/INFUUS / BRAND NAME NOT SPECIFIED [Suspect]
     Active Substance: PROPOFOL
     Indication: PRODUCT USED FOR UNKNOWN INDICATION
     Dosage: UNKNOWN:THERAPY START DATE :ASKU:THERAPY END DATE:ASKU
  8. ALLOPURINOL TABLET 100MG / ALLOPURINOL SANDOZ TABLET 100MG [Concomitant]
     Dosage: THERAPY START DATE :ASKU:THERAPY START DATE :ASKU
  9. RIVAROXABAN TABLET 20MG / XARELTO TABLET FILMOMHULD 20MG [Concomitant]
     Dosage: THERAPY START DATE :ASKU:THERAPY END DATE :ASKU
  10. BISACODYL TABLET MSR 5MG / BISACODYL APOTEX TABLET MSR 5MG [Concomitant]
     Dosage: THERAPY START DATE:ASKED BUT UNKNOWN?THERAPY END DATE :ASKED BUT UNKNOWN

REACTIONS (6)
  - Aspartate aminotransferase increased [Recovering/Resolving]
  - Blood bilirubin increased [Recovering/Resolving]
  - Blood lactate dehydrogenase increased [Recovering/Resolving]
  - Prothrombin time prolonged [Recovering/Resolving]
  - Drug-induced liver injury [Recovering/Resolving]
  - Alanine aminotransferase increased [Recovering/Resolving]
